FAERS Safety Report 8478621-9 (Version None)
Quarter: 2012Q2

REPORT INFORMATION
  Report Type: 
  Country: None (occurrence: None)
  Receive Date: 20120629
  Receipt Date: 20120620
  Transmission Date: 20120825
  Serious: Yes (Death, Life-Threatening)
  Sender: FDA-Public Use
  Company Number: FR-PFIZER INC-2007002685

PATIENT
  Age: 73 Year
  Sex: Male
  Weight: 70 kg

DRUGS (5)
  1. MIRTAZAPINE [Suspect]
     Dosage: 3 DOSE FORMS,DAILY
     Route: 048
     Dates: end: 20060120
  2. DEBRIDAT [Suspect]
     Indication: ABDOMINAL DISCOMFORT
     Dosage: 3 DOSE FORMS,DAILY
     Route: 048
     Dates: start: 20060117, end: 20060120
  3. TERCIAN [Suspect]
     Route: 048
     Dates: end: 20060120
  4. LITHIUM CARBONATE [Suspect]
     Dosage: 2.5 DOSE FORMS,DAILY
     Route: 048
     Dates: end: 20060120
  5. EFFEXOR [Suspect]
     Dosage: 2 DOSE FORMS,DAILY
     Route: 048
     Dates: end: 20060120

REACTIONS (1)
  - VOMITING [None]
